FAERS Safety Report 8815985 (Version 1)
Quarter: 2012Q4

REPORT INFORMATION
  Report Type: 
  Country: US (occurrence: US)
  Receive Date: 20120928
  Receipt Date: 20120928
  Transmission Date: 20130627
  Serious: No
  Sender: FDA-Public Use
  Company Number: US-VIIV HEALTHCARE LIMITED-A0943902A

PATIENT
  Age: 37 Year
  Sex: Male

DRUGS (4)
  1. EPZICOM [Suspect]
     Indication: PRODUCT USED FOR UNKNOWN INDICATION
     Dosage: 900MG Per day
     Route: 048
     Dates: start: 20110820
  2. REYATAZ [Concomitant]
  3. NORVIR [Concomitant]
  4. BACTRIM [Concomitant]

REACTIONS (4)
  - Urticaria [Not Recovered/Not Resolved]
  - Chest pain [Unknown]
  - Dyspnoea [Unknown]
  - Headache [Unknown]
